FAERS Safety Report 17545331 (Version 2)
Quarter: 2020Q3

REPORT INFORMATION
  Report Type: Spontaneous
  Country: US (occurrence: US)
  Receive Date: 20200316
  Receipt Date: 20200826
  Transmission Date: 20201102
  Serious: Yes (Other)
  Sender: FDA-Public Use
  Company Number: US-GILEAD-2020-0454550

PATIENT
  Age: 29 Year
  Sex: Female

DRUGS (1)
  1. TRUVADA [Suspect]
     Active Substance: EMTRICITABINE\TENOFOVIR DISOPROXIL FUMARATE
     Indication: HIV INFECTION
     Dosage: UNK
     Route: 048
     Dates: start: 20090621, end: 20180730

REACTIONS (16)
  - Hand fracture [Not Recovered/Not Resolved]
  - Fracture [Unknown]
  - Pain [Unknown]
  - Hand fracture [Not Recovered/Not Resolved]
  - Wrist fracture [Not Recovered/Not Resolved]
  - Osteoporosis [Unknown]
  - Chronic kidney disease [Not Recovered/Not Resolved]
  - Bone density decreased [Unknown]
  - Anhedonia [Unknown]
  - Economic problem [Unknown]
  - Clavicle fracture [Not Recovered/Not Resolved]
  - Emotional distress [Unknown]
  - Acute kidney injury [Not Recovered/Not Resolved]
  - Rib fracture [Not Recovered/Not Resolved]
  - Renal failure [Unknown]
  - Anxiety [Unknown]

NARRATIVE: CASE EVENT DATE: 20140820
